FAERS Safety Report 15581160 (Version 1)
Quarter: 2018Q4

REPORT INFORMATION
  Report Type: Spontaneous
  Country: FR (occurrence: FR)
  Receive Date: 20181102
  Receipt Date: 20181102
  Transmission Date: 20190205
  Serious: Yes (Other)
  Sender: FDA-Public Use
  Company Number: FR-TEVA-2018-FR-971490

PATIENT
  Age: 80 Year
  Sex: Female

DRUGS (6)
  1. KARDEGIC [Concomitant]
     Active Substance: ASPIRIN DL-LYSINE
     Indication: PRODUCT USED FOR UNKNOWN INDICATION
     Route: 048
     Dates: start: 2007
  2. ALPRAZOLAM SANDOZ [Concomitant]
     Active Substance: ALPRAZOLAM
     Indication: ANXIETY
     Dosage: .5 DOSAGE FORMS DAILY; PRN
     Route: 048
  3. ESIDREX [Concomitant]
     Active Substance: HYDROCHLOROTHIAZIDE
     Indication: HYPERTENSION
     Dosage: .5 DOSAGE FORMS DAILY; QD
     Route: 048
     Dates: start: 2007
  4. LERCANIDIPINE NOS [Suspect]
     Active Substance: LERCANIDIPINE
     Indication: HYPERTENSION
     Dosage: .5 DOSAGE FORMS DAILY;
     Route: 048
     Dates: start: 2007
  5. NEBIVOLOL NOS [Suspect]
     Active Substance: NEBIVOLOL
     Indication: HYPERTENSION
     Dosage: .5 DOSAGE FORMS DAILY;
     Route: 048
     Dates: start: 2007
  6. IMOVANE [Concomitant]
     Active Substance: ZOPICLONE
     Indication: INSOMNIA
     Dosage: PRN
     Route: 048

REACTIONS (2)
  - Dizziness [Recovered/Resolved]
  - Loss of consciousness [Recovered/Resolved]
